FAERS Safety Report 6979547-X (Version None)
Quarter: 2010Q3

REPORT INFORMATION
  Report Type: 
  Country: None (occurrence: None)
  Receive Date: 20100913
  Receipt Date: 20100903
  Transmission Date: 20110219
  Serious: Yes (Other)
  Sender: FDA-Public Use
  Company Number: US-ABBOTT-10P-163-0646791-00

PATIENT

DRUGS (12)
  1. HUMIRA [Suspect]
     Indication: PSORIASIS
     Dates: start: 20090601, end: 20100301
  2. MOTRIN [Concomitant]
     Indication: PRODUCT USED FOR UNKNOWN INDICATION
     Dosage: AS REQUIRED
  3. CALCIUM [Concomitant]
     Indication: PRODUCT USED FOR UNKNOWN INDICATION
  4. VITAMIN D [Concomitant]
     Indication: PRODUCT USED FOR UNKNOWN INDICATION
  5. M.V.I. [Concomitant]
     Indication: PRODUCT USED FOR UNKNOWN INDICATION
  6. BYSTOLIC [Concomitant]
     Indication: PRODUCT USED FOR UNKNOWN INDICATION
  7. COPAXONE [Concomitant]
     Indication: PRODUCT USED FOR UNKNOWN INDICATION
  8. OVERT THE COUNTER VITAMINS [Concomitant]
     Indication: HYPERTENSION
  9. VITAMIN D [Concomitant]
     Indication: HYPERTENSION
  10. VITAMIN E [Concomitant]
     Indication: HYPERTENSION
  11. BIOTIN [Concomitant]
     Indication: HYPERTENSION
  12. BYSTOLIC [Concomitant]
     Indication: HYPERTENSION

REACTIONS (10)
  - ARTHRALGIA [None]
  - EYE PAIN [None]
  - HYPOAESTHESIA FACIAL [None]
  - JOINT SWELLING [None]
  - MULTIPLE SCLEROSIS [None]
  - MUSCULOSKELETAL STIFFNESS [None]
  - PAIN IN EXTREMITY [None]
  - PARAESTHESIA [None]
  - PSORIATIC ARTHROPATHY [None]
  - VISUAL ACUITY REDUCED [None]
